FAERS Safety Report 10709468 (Version 1)
Quarter: 2015Q1

REPORT INFORMATION
  Report Type: Spontaneous
  Country: US (occurrence: None)
  Receive Date: 20150113
  Receipt Date: 20150113
  Transmission Date: 20150721
  Serious: No
  Sender: FDA-Public Use
  Company Number: None

PATIENT
  Age: 41 Year
  Sex: Female
  Weight: 77.11 kg

DRUGS (1)
  1. MODAFINIL. [Suspect]
     Active Substance: MODAFINIL
     Indication: NARCOLEPSY
     Dosage: 1 IN THE AM ONCE DAILY TAKEN BY MOUTH
     Route: 048
     Dates: start: 20141219, end: 20150112

REACTIONS (4)
  - Product substitution issue [None]
  - Product quality issue [None]
  - Drug ineffective [None]
  - Expired product administered [None]

NARRATIVE: CASE EVENT DATE: 20141219
